FAERS Safety Report 8096784-4 (Version None)
Quarter: 2012Q1

REPORT INFORMATION
  Report Type: 
  Country: None (occurrence: None)
  Receive Date: 20120129
  Receipt Date: 20111221
  Transmission Date: 20120608
  Serious: No
  Sender: FDA-Public Use
  Company Number: US-ABBOTT-11P-163-0862809-00

PATIENT
  Age: 23 Year
  Sex: Female

DRUGS (6)
  1. FLONASE [Concomitant]
     Indication: PRODUCT USED FOR UNKNOWN INDICATION
     Route: 045
  2. HUMIRA [Suspect]
     Indication: PUSTULAR PSORIASIS
     Dates: start: 20110914
  3. HUMIRA [Suspect]
     Indication: PSORIASIS
  4. CORTICOSTEROIDS [Concomitant]
     Indication: PRODUCT USED FOR UNKNOWN INDICATION
     Route: 061
  5. VITAMIN D [Concomitant]
     Indication: PRODUCT USED FOR UNKNOWN INDICATION
     Route: 061
  6. CLARITIN [Concomitant]
     Indication: PRODUCT USED FOR UNKNOWN INDICATION

REACTIONS (8)
  - INJECTION SITE PAPULE [None]
  - PSORIASIS [None]
  - INJECTION SITE PRURITUS [None]
  - ERYTHEMA [None]
  - OTITIS MEDIA [None]
  - NODULE [None]
  - INJECTION SITE ERYTHEMA [None]
  - OTITIS EXTERNA [None]
